FAERS Safety Report 8890318 (Version 1)
Quarter: 2012Q4

REPORT INFORMATION
  Report Type: 
  Country: US (occurrence: US)
  Receive Date: 20121107
  Receipt Date: 20121107
  Transmission Date: 20130627
  Serious: Yes (Other)
  Sender: FDA-Public Use
  Company Number: US-BAYER-2012-113981

PATIENT
  Age: 57 Year
  Sex: Female

DRUGS (2)
  1. SORAFENIB (RAF KINASE INHIBITOR) [Suspect]
     Indication: GASTROINTESTINAL STROMAL TUMOUR
     Route: 048
  2. SORAFENIB (RAF KINASE INHIBITOR) [Suspect]
     Indication: GASTROINTESTINAL STROMAL TUMOUR
     Dosage: reinstituted at the same dose
     Route: 048

REACTIONS (3)
  - Pneumatosis intestinalis [Recovered/Resolved]
  - Abdominal pain [Recovered/Resolved]
  - Off label use [None]
